FAERS Safety Report 4508304-9 (Version None)
Quarter: 2004Q4

REPORT INFORMATION
  Report Type: 
  Country: None (occurrence: None)
  Receive Date: 20041123
  Receipt Date: 20031229
  Transmission Date: 20050328
  Serious: No
  Sender: FDA-Public Use
  Company Number: US-GLAXOSMITHKLINE-A0490763A

PATIENT
  Age: 32 Year
  Sex: Female

DRUGS (8)
  1. WELLBUTRIN SR [Suspect]
     Indication: DEPRESSION
     Dosage: 150MG TWICE PER DAY
     Route: 048
  2. WELLBUTRIN [Suspect]
     Indication: DEPRESSION
     Dosage: 100MG TWICE PER DAY
     Route: 048
  3. LEXAPRO [Concomitant]
  4. LOTENSIN [Concomitant]
  5. VIOXX [Concomitant]
  6. NEURONTIN [Concomitant]
  7. ROBAXIN [Concomitant]
  8. OXYCONTIN [Concomitant]

REACTIONS (2)
  - ANORGASMIA [None]
  - LIBIDO DECREASED [None]
